FAERS Safety Report 9328065 (Version 1)
Quarter: 2013Q2

REPORT INFORMATION
  Report Type: Spontaneous
  Country: US (occurrence: US)
  Receive Date: 20130604
  Receipt Date: 20130604
  Transmission Date: 20140414
  Serious: Yes (Other)
  Sender: FDA-Public Use
  Company Number: US-SANOFI-AVENTIS-2012SA031883

PATIENT
  Age: 47 Year
  Sex: Female

DRUGS (1)
  1. LANTUS [Suspect]
     Route: 058
     Dates: start: 20120504, end: 20120504

REACTIONS (4)
  - Drug hypersensitivity [Unknown]
  - Swollen tongue [Unknown]
  - Lip swelling [Unknown]
  - Dry mouth [Unknown]
